FAERS Safety Report 8248526-7 (Version None)
Quarter: 2012Q1

REPORT INFORMATION
  Report Type: 
  Country: None (occurrence: None)
  Receive Date: 20120330
  Receipt Date: 20120321
  Transmission Date: 20120608
  Serious: Yes (Other)
  Sender: FDA-Public Use
  Company Number: BR-ROCHE-1011455

PATIENT
  Sex: Female
  Weight: 70 kg

DRUGS (3)
  1. BONIVA [Suspect]
     Indication: OSTEOPOROSIS
     Route: 048
     Dates: start: 20111107
  2. XELODA [Suspect]
     Indication: BREAST CANCER METASTATIC
     Route: 048
     Dates: start: 20120120
  3. AROMASIN [Concomitant]
     Indication: CHEMOTHERAPY

REACTIONS (5)
  - LOOSE TOOTH [None]
  - BONE PAIN [None]
  - BREAST CANCER METASTATIC [None]
  - MALAISE [None]
  - BONE DISORDER [None]
